FAERS Safety Report 8151932-2 (Version None)
Quarter: 2012Q1

REPORT INFORMATION
  Report Type: 
  Country: None (occurrence: None)
  Receive Date: 20120221
  Receipt Date: 20120215
  Transmission Date: 20120608
  Serious: No
  Sender: FDA-Public Use
  Company Number: US-PFIZER INC-2012041303

PATIENT
  Sex: Male

DRUGS (2)
  1. LYRICA [Suspect]
     Indication: HERPES ZOSTER
     Dosage: UNK
  2. PERCOCET [Concomitant]
     Dosage: UNK

REACTIONS (3)
  - VISION BLURRED [None]
  - PAIN [None]
  - CONSTIPATION [None]
